FAERS Safety Report 6649473-4 (Version None)
Quarter: 2010Q1

REPORT INFORMATION
  Report Type: 
  Country: None (occurrence: None)
  Receive Date: 20100324
  Receipt Date: 20100317
  Transmission Date: 20100710
  Serious: Yes (Hospitalization)
  Sender: FDA-Public Use
  Company Number: GB-AMGEN-QUU400135

PATIENT
  Sex: Female

DRUGS (5)
  1. NEULASTA [Suspect]
     Indication: CHEMOTHERAPY
     Route: 065
  2. RITUXAN [Concomitant]
  3. IFOSFAMIDE [Concomitant]
  4. CARBOPLATIN [Concomitant]
  5. ETOPOSIDE [Concomitant]

REACTIONS (1)
  - NEUTROPENIA [None]
